FAERS Safety Report 19097849 (Version 5)
Quarter: 2021Q2

REPORT INFORMATION
  Report Type: Report from Study
  Country: KR (occurrence: KR)
  Receive Date: 20210406
  Receipt Date: 20210608
  Transmission Date: 20210717
  Serious: Yes (Life-Threatening, Hospitalization)
  Sender: FDA-Public Use
  Company Number: KR-ROCHE-2800443

PATIENT
  Age: 58 Year
  Sex: Male
  Weight: 65.5 kg

DRUGS (11)
  1. DEXAMETHASONE. [Concomitant]
     Active Substance: DEXAMETHASONE
     Route: 042
     Dates: start: 20210323, end: 20210323
  2. ALOXI [Concomitant]
     Active Substance: PALONOSETRON HYDROCHLORIDE
     Route: 042
     Dates: start: 20210323, end: 20210323
  3. ATEZOLIZUMAB. [Suspect]
     Active Substance: ATEZOLIZUMAB
     Indication: SMALL CELL LUNG CANCER EXTENSIVE STAGE
     Dosage: DATE OF MOST RECENT DOSE ADMINISTERED OF ATEZOLIZUMAB PRIOR TO AE/SAE ONSET: 23/MAR/2021 ?DAY 1 OF E
     Route: 042
     Dates: start: 20210105
  4. HANMI TAMS [Concomitant]
     Indication: BENIGN PROSTATIC HYPERPLASIA
     Route: 048
     Dates: start: 2018, end: 20210407
  5. LEVOPRIDE (SOUTH KOREA) [Concomitant]
     Route: 048
     Dates: start: 20210126
  6. TRAMADOL HCL [Concomitant]
     Active Substance: TRAMADOL HYDROCHLORIDE
     Indication: ARTHRALGIA
     Route: 048
     Dates: start: 2010
  7. VESICARE [Concomitant]
     Active Substance: SOLIFENACIN SUCCINATE
     Indication: BENIGN PROSTATIC HYPERPLASIA
     Route: 048
     Dates: start: 2018, end: 20210407
  8. TIRAGOLUMAB. [Suspect]
     Active Substance: TIRAGOLUMAB
     Indication: SMALL CELL LUNG CANCER EXTENSIVE STAGE
     Dosage: DATE OF MOST RECENT DOSE ADMINISTERED OF BLINDED MTIG 7192A PRIOR TO AE/SAE ONSET: 23/MAR/2021 ?DAY
     Route: 042
     Dates: start: 20210105
  9. CARBOPLATIN. [Suspect]
     Active Substance: CARBOPLATIN
     Indication: SMALL CELL LUNG CANCER EXTENSIVE STAGE
     Dosage: DATE OF MOST RECENT DOSE (670 MG) ADMINISTERED OF CARBOPLATIN PRIOR TO AE/SAE ONSET: 23/MAR/2021 ?DA
     Route: 042
     Dates: start: 20210105
  10. ETOPOSIDE. [Suspect]
     Active Substance: ETOPOSIDE
     Indication: SMALL CELL LUNG CANCER EXTENSIVE STAGE
     Dosage: DATE OF MOST RECENT DOSE (180 MG) ADMINISTERED OF ETOPOSIDE PRIOR TO AE/SAE ONSET: 25/MAR/2021 ?DAYS
     Route: 042
     Dates: start: 20210105
  11. AVODART [Concomitant]
     Active Substance: DUTASTERIDE
     Indication: BENIGN PROSTATIC HYPERPLASIA
     Route: 048
     Dates: start: 2018, end: 20210407

REACTIONS (1)
  - Acute myocardial infarction [Recovered/Resolved]

NARRATIVE: CASE EVENT DATE: 20210328
